FAERS Safety Report 16787516 (Version 1)
Quarter: 2019Q3

REPORT INFORMATION
  Report Type: Spontaneous
  Country: US (occurrence: US)
  Receive Date: 20190909
  Receipt Date: 20190909
  Transmission Date: 20191005
  Serious: Yes (Hospitalization)
  Sender: FDA-Public Use
  Company Number: US-PFIZER INC-2019383105

PATIENT
  Age: 7 Year
  Sex: Male
  Weight: 58.97 kg

DRUGS (3)
  1. GENOTROPIN [Suspect]
     Active Substance: SOMATROPIN
     Dosage: 1.2 MG, DAILY
  2. GENOTROPIN [Suspect]
     Active Substance: SOMATROPIN
     Dosage: 1.5 MG, EVERY DAY
     Route: 058
     Dates: end: 20190829
  3. GENOTROPIN [Suspect]
     Active Substance: SOMATROPIN
     Indication: PRADER-WILLI SYNDROME
     Dosage: UNK, DAILY

REACTIONS (2)
  - Pharyngitis streptococcal [Recovering/Resolving]
  - Therapeutic product effect incomplete [Not Recovered/Not Resolved]
